FAERS Safety Report 5471496-1 (Version None)
Quarter: 2007Q3

REPORT INFORMATION
  Report Type: 
  Country: None (occurrence: None)
  Receive Date: 20070928
  Receipt Date: 20061116
  Transmission Date: 20080115
  Serious: No
  Sender: FDA-Public Use
  Company Number: US-BRISTOL-MYERS SQUIBB COMPANY-13580964

PATIENT
  Age: 59 Year
  Sex: Male
  Weight: 150 kg

DRUGS (5)
  1. DEFINITY [Suspect]
     Indication: STRESS ECHOCARDIOGRAM
     Route: 042
  2. CELEBREX [Concomitant]
  3. TOPROL-XL [Concomitant]
  4. ALLOPURINOL [Concomitant]
  5. DIOVAN [Concomitant]

REACTIONS (2)
  - BACK PAIN [None]
  - CHEST PAIN [None]
